FAERS Safety Report 4784086-0 (Version None)
Quarter: 2005Q3

REPORT INFORMATION
  Report Type: 
  Country: None (occurrence: None)
  Receive Date: 20050930
  Receipt Date: 20050606
  Transmission Date: 20060218
  Serious: No
  Sender: FDA-Public Use
  Company Number: US-GLAXOSMITHKLINE-A0561384A

PATIENT
  Age: 28 Year
  Sex: Male

DRUGS (11)
  1. FLOVENT [Suspect]
     Dosage: 1PUFF PER DAY
     Route: 055
     Dates: start: 20050526
  2. EFFEXOR [Concomitant]
  3. LORTAB [Concomitant]
  4. SEROQUEL [Concomitant]
  5. RELAFEN [Concomitant]
  6. PROZAC [Concomitant]
  7. AMBIEN [Concomitant]
  8. ALBUTEROL [Concomitant]
  9. LITHIUM [Concomitant]
  10. XANAX [Concomitant]
  11. LIPITOR [Concomitant]

REACTIONS (1)
  - NOCTURNAL DYSPNOEA [None]
